FAERS Safety Report 7520859-9 (Version None)
Quarter: 2011Q2

REPORT INFORMATION
  Report Type: 
  Country: None (occurrence: None)
  Receive Date: 20110603
  Receipt Date: 20101020
  Transmission Date: 20111010
  Serious: Yes (Hospitalization)
  Sender: FDA-Public Use
  Company Number: US-BAYER-201022904NA

PATIENT
  Age: 37 Year
  Sex: Female
  Weight: 86 kg

DRUGS (12)
  1. IMITREX [Concomitant]
     Indication: HEADACHE
     Dosage: UNK UNK, QD
     Route: 048
     Dates: start: 20080204
  2. PREVACID [Concomitant]
  3. PREVPAC [Concomitant]
     Dosage: UNK
     Dates: end: 20080311
  4. LISINOPRIL [Concomitant]
     Indication: HYPERTENSION
     Dosage: UNK UNK, QD
     Route: 048
     Dates: end: 20080319
  5. ANTIBIOTICS [Concomitant]
  6. DROSPIRENONE AND ETHINYL ESTRADIOL [Suspect]
     Indication: CONTRACEPTION
     Route: 048
     Dates: start: 20070801, end: 20090801
  7. DROSPIRENONE AND ETHINYL ESTRADIOL [Suspect]
     Indication: PREMENSTRUAL SYNDROME
  8. DROSPIRENONE AND ETHINYL ESTRADIOL [Suspect]
     Indication: MENSTRUAL CYCLE MANAGEMENT
  9. MOTRIN [Concomitant]
     Dosage: 2 PILLS DAILY
  10. ULTRAM [Concomitant]
     Indication: PAIN
  11. PROPOXYPHENE HYDROCHLORIDE [Concomitant]
     Dosage: UNK UNK, PRN
     Route: 048
     Dates: start: 20080611
  12. ESGIC [Concomitant]
     Indication: HEADACHE
     Dosage: 2 PILLS DAILY
     Route: 048

REACTIONS (13)
  - DYSPNOEA [None]
  - CHOLELITHIASIS [None]
  - VOMITING [None]
  - BILIARY COLIC [None]
  - HEPATIC ENZYME INCREASED [None]
  - CHOLECYSTITIS ACUTE [None]
  - MUSCLE SPASMS [None]
  - DIARRHOEA [None]
  - HEADACHE [None]
  - PAIN [None]
  - HYPERTENSION [None]
  - ABDOMINAL PAIN UPPER [None]
  - ANXIETY [None]
